FAERS Safety Report 4287664-0 (Version None)
Quarter: 2004Q1

REPORT INFORMATION
  Report Type: 
  Country: None (occurrence: None)
  Receive Date: 20040209
  Receipt Date: 20030821
  Transmission Date: 20041129
  Serious: No
  Sender: FDA-Public Use
  Company Number: US-GLAXOSMITHKLINE-A0423063A

PATIENT
  Age: 47 Year
  Sex: Male

DRUGS (2)
  1. PAXIL CR [Suspect]
     Dates: end: 20030101
  2. WELLBUTRIN SR [Suspect]
     Dates: start: 20030101

REACTIONS (3)
  - DIZZINESS [None]
  - NAUSEA [None]
  - SEXUAL DYSFUNCTION [None]
